FAERS Safety Report 16449713 (Version 1)
Quarter: 2019Q3

REPORT INFORMATION
  Report Type: Spontaneous
  Country: US (occurrence: US)
  Receive Date: 20190618
  Receipt Date: 20190618
  Transmission Date: 20191004
  Serious: Yes (Other)
  Sender: FDA-Public Use
  Company Number: None

PATIENT
  Age: 46 Year
  Sex: Female
  Weight: 81.65 kg

DRUGS (1)
  1. MIRENA [Suspect]
     Active Substance: LEVONORGESTREL

REACTIONS (5)
  - Migraine [None]
  - Affective disorder [None]
  - Haemorrhage [None]
  - Breast cancer stage I [None]
  - Muscle spasms [None]

NARRATIVE: CASE EVENT DATE: 20171230
